FAERS Safety Report 8264558-7 (Version None)
Quarter: 2012Q2

REPORT INFORMATION
  Report Type: 
  Country: None (occurrence: None)
  Receive Date: 20120403
  Receipt Date: 20120319
  Transmission Date: 20120825
  Serious: Yes (Other)
  Sender: FDA-Public Use
  Company Number: GGEL20120300379

PATIENT
  Sex: Female

DRUGS (4)
  1. (PILL) [Concomitant]
  2. NORGESTIMATE AND ETHINYL ESTRADIOL [Suspect]
     Indication: CONTRACEPTION
     Dosage: 1 IN 1 D, ORAL
     Route: 048
     Dates: start: 20120301, end: 20120316
  3. NORGESTIMATE AND ETHINYL ESTRADIOL [Suspect]
     Indication: MENSTRUAL CYCLE MANAGEMENT
     Dosage: 1 IN 1 D, ORAL
     Route: 048
     Dates: start: 20120301, end: 20120316
  4. ADVAIR (FLUTICASONE, SALMETEROL) (INHALANT) (FLUTICASONE, SALMETEROL) [Concomitant]

REACTIONS (6)
  - ABNORMAL FAECES [None]
  - SWELLING [None]
  - VOMITING [None]
  - MENSTRUAL DISORDER [None]
  - ABDOMINAL PAIN UPPER [None]
  - GALLBLADDER DISORDER [None]
